FAERS Safety Report 18344481 (Version 1)
Quarter: 2020Q4

REPORT INFORMATION
  Report Type: Spontaneous
  Country: FR (occurrence: FR)
  Receive Date: 20201005
  Receipt Date: 20201005
  Transmission Date: 20210114
  Serious: Yes (Hospitalization)
  Sender: FDA-Public Use
  Company Number: FR-MYLANLABS-2020M1083088

PATIENT
  Age: 52 Year
  Sex: Male
  Weight: 106 kg

DRUGS (6)
  1. HUMIRA [Suspect]
     Active Substance: ADALIMUMAB
     Dosage: 40 MILLILITER, QW
     Route: 058
     Dates: start: 201606
  2. ENBREL [Suspect]
     Active Substance: ETANERCEPT
     Indication: PSORIASIS
     Dosage: 100 MILLIGRAM, QW
     Route: 058
     Dates: start: 201509, end: 201606
  3. REMICADE [Suspect]
     Active Substance: INFLIXIMAB
     Indication: PSORIASIS
     Dosage: 5 MILLIGRAM/KILOGRAM, MONTHLY
     Route: 041
     Dates: start: 20140429, end: 201412
  4. HUMIRA [Suspect]
     Active Substance: ADALIMUMAB
     Indication: PSORIASIS
     Dosage: 40 MILLIGRAM, Q2W
     Route: 058
     Dates: start: 201010, end: 201404
  5. STELARA [Suspect]
     Active Substance: USTEKINUMAB
     Indication: PSORIASIS
     Dosage: 90 MILLIGRAM, Q3MONTHS
     Route: 058
     Dates: start: 20141212, end: 201509
  6. METHOTREXATE. [Suspect]
     Active Substance: METHOTREXATE
     Indication: PSORIASIS
     Dosage: 20 MILLIGRAM, QW
     Route: 058
     Dates: start: 200809, end: 201008

REACTIONS (1)
  - Hodgkin^s disease nodular sclerosis stage III [Recovered/Resolved]

NARRATIVE: CASE EVENT DATE: 20170306
